FAERS Safety Report 18081339 (Version 2)
Quarter: 2020Q3

REPORT INFORMATION
  Report Type: Report from Study
  Country: GR (occurrence: GR)
  Receive Date: 20200728
  Receipt Date: 20200820
  Transmission Date: 20201103
  Serious: Yes (Hospitalization)
  Sender: FDA-Public Use
  Company Number: GR-AMGEN-GRCCT2020117768

PATIENT
  Age: 56 Year
  Sex: Male
  Weight: 130 kg

DRUGS (6)
  1. QUETIAPIN [Concomitant]
     Active Substance: QUETIAPINE
     Dosage: 400 MILLIGRAM
     Route: 048
     Dates: start: 2010
  2. PEMBROLIZUMAB. [Suspect]
     Active Substance: PEMBROLIZUMAB
     Indication: MALIGNANT MELANOMA
     Dosage: 200 MILLIGRAM
     Route: 042
     Dates: start: 20200612
  3. DEPAKINE [VALPROIC ACID] [Concomitant]
     Active Substance: VALPROIC ACID
     Dosage: 200 MILLIGRAM
     Route: 048
     Dates: start: 2010
  4. ARCOXIA [Concomitant]
     Active Substance: ETORICOXIB
     Dosage: 90 MILLIGRAM
     Route: 048
     Dates: start: 20200620, end: 20200627
  5. SEROQUEL [Concomitant]
     Active Substance: QUETIAPINE FUMARATE
     Dosage: 6 MILLIGRAM
     Route: 048
     Dates: start: 2010
  6. TALIMOGENE LAHERPAREPVEC [Suspect]
     Active Substance: TALIMOGENE LAHERPAREPVEC
     Indication: MALIGNANT MELANOMA
     Dosage: 4 MILLILITER
     Route: 026
     Dates: start: 20200612

REACTIONS (1)
  - Dyspnoea [Recovered/Resolved]

NARRATIVE: CASE EVENT DATE: 20200716
